FAERS Safety Report 4638053-8 (Version None)
Quarter: 2005Q2

REPORT INFORMATION
  Report Type: 
  Country: None (occurrence: None)
  Receive Date: 20050415
  Receipt Date: 20050328
  Transmission Date: 20051028
  Serious: Yes (Hospitalization)
  Sender: FDA-Public Use
  Company Number: US_0501111589

PATIENT
  Sex: Female

DRUGS (2)
  1. CYMBALTA [Suspect]
  2. METHYLENEDIOXYMETHAMPHETAMINE [Concomitant]

REACTIONS (2)
  - DRUG INTERACTION [None]
  - NEUROLEPTIC MALIGNANT SYNDROME [None]
